FAERS Safety Report 5853973-4 (Version None)
Quarter: 2008Q3

REPORT INFORMATION
  Report Type: 
  Country: None (occurrence: None)
  Receive Date: 20080822
  Receipt Date: 20080814
  Transmission Date: 20090109
  Serious: Yes (Hospitalization)
  Sender: FDA-Public Use
  Company Number: FR-JNJFOC-20080804487

PATIENT
  Sex: Male

DRUGS (4)
  1. ZALDIAR [Suspect]
     Indication: TRIGEMINAL NEURALGIA
     Route: 048
  2. TEGRETOL [Suspect]
     Indication: TRIGEMINAL NEURALGIA
     Route: 065
  3. ASPIRIN [Concomitant]
     Indication: VENOUS THROMBOSIS
     Route: 065
  4. PROSCAR [Concomitant]
     Indication: BENIGN PROSTATIC HYPERPLASIA
     Route: 065

REACTIONS (5)
  - FALL [None]
  - HEAD INJURY [None]
  - LOSS OF CONSCIOUSNESS [None]
  - MALAISE [None]
  - VERTIGO [None]
